FAERS Safety Report 8319112-5 (Version None)
Quarter: 2012Q2

REPORT INFORMATION
  Report Type: 
  Country: None (occurrence: None)
  Receive Date: 20120427
  Receipt Date: 20120425
  Transmission Date: 20120825
  Serious: Yes (Other)
  Sender: FDA-Public Use
  Company Number: GB-MERCK-1204USA03932

PATIENT
  Age: 63 Year
  Sex: Female
  Weight: 95 kg

DRUGS (9)
  1. CANDESARTAN [Concomitant]
     Route: 065
     Dates: start: 20111130
  2. GLICLAZIDE [Concomitant]
     Route: 065
     Dates: start: 20120109, end: 20120206
  3. GLICLAZIDE [Concomitant]
     Route: 065
     Dates: start: 20120312
  4. JANUVIA [Suspect]
     Route: 048
     Dates: start: 20120405
  5. METFORMIN [Concomitant]
     Route: 065
     Dates: start: 20120109
  6. METFORMIN [Concomitant]
     Route: 065
     Dates: start: 20120210, end: 20120309
  7. SIMVASTATIN [Concomitant]
     Route: 048
     Dates: start: 20120312, end: 20120409
  8. GLICLAZIDE [Concomitant]
     Route: 065
     Dates: start: 20120210, end: 20120309
  9. METFORMIN [Concomitant]
     Route: 065
     Dates: start: 20120312

REACTIONS (1)
  - DRUG ERUPTION [None]
